FAERS Safety Report 15640013 (Version 2)
Quarter: 2018Q4

REPORT INFORMATION
  Report Type: Report from Study
  Country: US (occurrence: US)
  Receive Date: 20181120
  Receipt Date: 20181126
  Transmission Date: 20190205
  Serious: Yes (Other)
  Sender: FDA-Public Use
  Company Number: US-SHIRE-US201843735

PATIENT
  Sex: Female

DRUGS (2)
  1. TAKHZYRO [Suspect]
     Active Substance: LANADELUMAB-FLYO
     Indication: PRODUCT USED FOR UNKNOWN INDICATION
     Dosage: 300 MG, 1X/2WKS
     Route: 058
     Dates: start: 20181102, end: 20181119
  2. ADRENALIN [Concomitant]
     Active Substance: EPINEPHRINE
     Indication: PRODUCT USED FOR UNKNOWN INDICATION

REACTIONS (22)
  - Dyspnoea [Not Recovered/Not Resolved]
  - Arthralgia [Not Recovered/Not Resolved]
  - Chest pain [Not Recovered/Not Resolved]
  - Cough [Recovering/Resolving]
  - Lip swelling [Recovering/Resolving]
  - Swelling [Recovering/Resolving]
  - Peripheral swelling [Not Recovered/Not Resolved]
  - Injection site mass [Not Recovered/Not Resolved]
  - Burning sensation [Not Recovered/Not Resolved]
  - Paraesthesia [Not Recovered/Not Resolved]
  - Presyncope [Not Recovered/Not Resolved]
  - Dizziness [Recovering/Resolving]
  - Respiratory tract oedema [Not Recovered/Not Resolved]
  - Flushing [Recovering/Resolving]
  - Nystagmus [Not Recovered/Not Resolved]
  - Injection site hypoaesthesia [Not Recovered/Not Resolved]
  - Dysphonia [Recovering/Resolving]
  - Paraesthesia [Recovering/Resolving]
  - Mydriasis [Recovered/Resolved]
  - Otorrhoea [Recovering/Resolving]
  - Tongue oedema [Recovering/Resolving]
  - Paraesthesia oral [Not Recovered/Not Resolved]

NARRATIVE: CASE EVENT DATE: 20181102
